FAERS Safety Report 10878348 (Version 1)
Quarter: 2015Q1

REPORT INFORMATION
  Report Type: Report from Study
  Country: US (occurrence: US)
  Receive Date: 20150302
  Receipt Date: 20150302
  Transmission Date: 20150721
  Serious: No
  Sender: FDA-Public Use
  Company Number: US-ABBVIE-14P-163-1276974-00

PATIENT
  Sex: Male

DRUGS (2)
  1. ANDROGEL [Suspect]
     Active Substance: TESTOSTERONE
     Dosage: TAKING 1.5 - 2 PUMPS DAILY
     Route: 061
  2. ANDROGEL [Suspect]
     Active Substance: TESTOSTERONE
     Indication: BLOOD TESTOSTERONE DECREASED
     Dosage: 4 PUMPS DAILY
     Route: 061

REACTIONS (3)
  - Incorrect dose administered [Not Recovered/Not Resolved]
  - Aggression [Recovered/Resolved]
  - Drug ineffective [Not Recovered/Not Resolved]
